FAERS Safety Report 9549681 (Version 1)
Quarter: 2013Q3

REPORT INFORMATION
  Report Type: Spontaneous
  Country: US (occurrence: US)
  Receive Date: 20130924
  Receipt Date: 20130924
  Transmission Date: 20140515
  Serious: Yes (Hospitalization, Other)
  Sender: FDA-Public Use
  Company Number: US-B.I. PHARMACEUTICALS,INC./RIDGEFIELD-2013-BI-29186BP

PATIENT
  Age: 85 Year
  Sex: Male
  Weight: 97.9 kg

DRUGS (10)
  1. PRADAXA [Suspect]
     Indication: ATRIAL FIBRILLATION
     Route: 065
  2. HUMIRA [Suspect]
     Indication: RHEUMATOID ARTHRITIS
     Dosage: 40 MG
     Route: 058
     Dates: start: 2003, end: 201001
  3. HUMIRA [Suspect]
     Dosage: 40 MG
     Route: 058
     Dates: start: 201004, end: 20130503
  4. COREG (CARVEDILOL) [Concomitant]
     Indication: ATRIAL FIBRILLATION
  5. IMURAN [Concomitant]
     Indication: RHEUMATOID ARTHRITIS
  6. TYLENOL (PARACETAMOL) [Concomitant]
  7. BLADDER 2.2 [Concomitant]
     Indication: PROPHYLAXIS
  8. POTASSIUM CHLORIDE [Concomitant]
     Indication: BLOOD POTASSIUM DECREASED
  9. TRAVATAN [Concomitant]
     Indication: GLAUCOMA
     Dosage: EYE DROP
  10. TIMOLOL [Concomitant]
     Indication: GLAUCOMA
     Dosage: EYE DROP

REACTIONS (12)
  - Haemoglobin decreased [Unknown]
  - Cardiac failure congestive [Unknown]
  - Gastrointestinal haemorrhage [Unknown]
  - Polyp [Unknown]
  - Haemorrhage [Unknown]
  - Gastrointestinal polyp haemorrhage [Unknown]
  - Diarrhoea [Unknown]
  - Iron deficiency anaemia [Unknown]
  - Rectal haemorrhage [Unknown]
  - Bladder cancer [Recovered/Resolved]
  - Renal failure chronic [Unknown]
  - Diarrhoea haemorrhagic [Unknown]
